FAERS Safety Report 18320853 (Version 1)
Quarter: 2020Q3

REPORT INFORMATION
  Report Type: Report from Study
  Country: US (occurrence: US)
  Receive Date: 20200928
  Receipt Date: 20200928
  Transmission Date: 20201103
  Serious: Yes (Hospitalization)
  Sender: FDA-Public Use
  Company Number: US-JNJFOC-A-US2019-194914

PATIENT
  Age: 58 Year
  Sex: Male
  Weight: 106.12 kg

DRUGS (5)
  1. ORENITRAM [Suspect]
     Active Substance: TREPROSTINIL
     Dosage: 1.125 MG
     Route: 065
  2. ORENITRAM [Suspect]
     Active Substance: TREPROSTINIL
     Indication: PRODUCT USED FOR UNKNOWN INDICATION
     Dosage: UNK
     Route: 065
  3. OPSUMIT [Suspect]
     Active Substance: MACITENTAN
     Indication: PULMONARY ARTERIAL HYPERTENSION
     Dosage: 10 MG, QD
     Route: 048
  4. SILDENAFIL CITRATE. [Concomitant]
     Active Substance: SILDENAFIL CITRATE
  5. ORENITRAM [Suspect]
     Active Substance: TREPROSTINIL
     Dosage: 1.25 MG, TID
     Route: 065

REACTIONS (17)
  - Headache [Unknown]
  - Diarrhoea [Unknown]
  - Condition aggravated [Unknown]
  - Dizziness [Unknown]
  - Frequent bowel movements [Unknown]
  - Unevaluable event [Unknown]
  - Nasopharyngitis [Unknown]
  - Hospitalisation [Unknown]
  - Tremor [Unknown]
  - Dyspnoea [Recovering/Resolving]
  - Malaise [Unknown]
  - Hypotension [Unknown]
  - Dry mouth [Unknown]
  - Acute kidney injury [Unknown]
  - Adverse event [Unknown]
  - Cardiac failure [Unknown]
  - Gastric disorder [Unknown]

NARRATIVE: CASE EVENT DATE: 20190820
